FAERS Safety Report 8083969-6 (Version None)
Quarter: 2012Q1

REPORT INFORMATION
  Report Type: 
  Country: None (occurrence: None)
  Receive Date: 20120128
  Receipt Date: 20110119
  Transmission Date: 20120608
  Serious: No
  Sender: FDA-Public Use
  Company Number: US-ABBOTT-11P-163-0699214-00

PATIENT
  Age: 49 Year
  Sex: Female

DRUGS (7)
  1. HUMIRA [Suspect]
     Indication: RHEUMATOID ARTHRITIS
     Dates: start: 20101224
  2. PREDNISONE TAB [Concomitant]
     Indication: ARTHRITIS
     Route: 048
  3. FERROUS SULFATE TAB [Concomitant]
     Indication: IRON DEFICIENCY
     Route: 048
  4. VICODIN [Concomitant]
     Indication: PAIN
  5. VITAMIN D [Concomitant]
     Indication: PRODUCT USED FOR UNKNOWN INDICATION
  6. VOLTAREN [Concomitant]
     Indication: RHEUMATOID ARTHRITIS
  7. OMEPRAZOLE [Concomitant]
     Indication: PRODUCT USED FOR UNKNOWN INDICATION
     Route: 048

REACTIONS (2)
  - PAIN IN EXTREMITY [None]
  - NERVE COMPRESSION [None]
